FAERS Safety Report 8369814-X (Version None)
Quarter: 2012Q1

REPORT INFORMATION
  Report Type: 
  Country: None (occurrence: None)
  Receive Date: 20120323
  Receipt Date: 20111102
  Transmission Date: 20120608
  Serious: Yes (Hospitalization, Other)
  Sender: FDA-Public Use
  Company Number: 163-21880-11080317

PATIENT
  Age: 68 Year
  Sex: Male

DRUGS (8)
  1. HYDROCODONE-ACETAMINOPHEN (REMEDEIN-E) [Concomitant]
  2. AMITRIPTYLINE HCL [Concomitant]
  3. ASPIRIN [Concomitant]
  4. REVLIMID [Suspect]
     Indication: MULTIPLE MYELOMA
     Dosage: 25 MG, DAILY FOR 21 DAYS, PO : 15 MG, PO
     Route: 048
     Dates: start: 20110408, end: 20110512
  5. REVLIMID [Suspect]
     Indication: MULTIPLE MYELOMA
     Dosage: 25 MG, DAILY FOR 21 DAYS, PO : 15 MG, PO
     Route: 048
     Dates: start: 20110811
  6. OXYCODONE HCL [Concomitant]
  7. FOLIC ACID [Concomitant]
  8. SENOKOT [Concomitant]

REACTIONS (3)
  - RENAL FAILURE [None]
  - DEHYDRATION [None]
  - HYPOTENSION [None]
